FAERS Safety Report 24301505 (Version 1)
Quarter: 2024Q3

REPORT INFORMATION
  Report Type: Spontaneous
  Country: US (occurrence: US)
  Receive Date: 20240910
  Receipt Date: 20240910
  Transmission Date: 20241017
  Serious: No
  Sender: LUPIN
  Company Number: US-LUPIN PHARMACEUTICALS INC.-2024-08506

PATIENT

DRUGS (1)
  1. ALBUTEROL SULFATE [Suspect]
     Active Substance: ALBUTEROL SULFATE
     Indication: COVID-19
     Dosage: UNK, 2-3 PUFFS WHEN NEEDED
     Dates: start: 202404

REACTIONS (3)
  - Product use in unapproved indication [Unknown]
  - Wrong technique in device usage process [Unknown]
  - No adverse event [Unknown]
